FAERS Safety Report 8863089 (Version 1)
Quarter: 2012Q4

REPORT INFORMATION
  Report Type: 
  Country: AU (occurrence: AU)
  Receive Date: 20121026
  Receipt Date: 20121026
  Transmission Date: 20130627
  Serious: Yes (Other)
  Sender: FDA-Public Use
  Company Number: AU-ABBOTT-12P-008-0995903-00

PATIENT
  Sex: Male

DRUGS (1)
  1. KALETRA [Suspect]
     Indication: HIV INFECTION
     Dates: start: 2007, end: 201201

REACTIONS (4)
  - Bowel movement irregularity [Recovered/Resolved]
  - Gastric disorder [Recovered/Resolved]
  - Abdominal distension [Recovered/Resolved]
  - Lipids abnormal [Recovering/Resolving]
